FAERS Safety Report 11238855 (Version 1)
Quarter: 2015Q3

REPORT INFORMATION
  Report Type: Spontaneous
  Country: US (occurrence: None)
  Receive Date: 20150701
  Receipt Date: 20150701
  Transmission Date: 20151125
  Serious: No
  Sender: FDA-Public Use
  Company Number: None

PATIENT
  Sex: Female
  Weight: 86.18 kg

DRUGS (7)
  1. POTASSIUM [Concomitant]
     Active Substance: POTASSIUM
  2. ATENOLOL/CHLORTH [Concomitant]
     Active Substance: ATENOLOL\CHLORTHALIDONE
  3. LORATADINE. [Concomitant]
     Active Substance: LORATADINE
  4. XARELTO [Concomitant]
     Active Substance: RIVAROXABAN
  5. PRADAXA [Suspect]
     Active Substance: DABIGATRAN ETEXILATE MESYLATE
     Indication: ATRIAL FIBRILLATION
     Dosage: BY MOUTH
     Dates: start: 201206, end: 201505
  6. GEMFIBROZIL. [Concomitant]
     Active Substance: GEMFIBROZIL
  7. OSTEO BIFLEX [Concomitant]
     Active Substance: CHONDROITIN SULFATE A\GLUCOSAMINE

REACTIONS (1)
  - Bone pain [None]

NARRATIVE: CASE EVENT DATE: 201210
